FAERS Safety Report 6144565-0 (Version None)
Quarter: 2009Q2

REPORT INFORMATION
  Report Type: 
  Country: None (occurrence: None)
  Receive Date: 20090401
  Receipt Date: 20090324
  Transmission Date: 20091009
  Serious: Yes (Hospitalization)
  Sender: FDA-Public Use
  Company Number: 2009AL001806

PATIENT
  Age: 59 Year
  Sex: Male

DRUGS (7)
  1. VENLAFAXINE HCL [Suspect]
     Indication: DEPRESSION
     Dosage: 37.5MG; BID; PO
     Route: 048
     Dates: start: 20090205, end: 20090209
  2. DIAZEPAM [Concomitant]
  3. FLUPENTIXOL [Concomitant]
  4. PARACETAMOL [Concomitant]
  5. IBUPROFEN [Concomitant]
  6. MIRTAZAPINE [Concomitant]
  7. CLOZAPINE [Concomitant]

REACTIONS (3)
  - DYSURIA [None]
  - NOCTURIA [None]
  - SUPRAPUBIC PAIN [None]
